FAERS Safety Report 14816387 (Version 2)
Quarter: 2018Q2

REPORT INFORMATION
  Report Type: Spontaneous
  Country: GB (occurrence: GB)
  Receive Date: 20180426
  Receipt Date: 20180627
  Transmission Date: 20180711
  Serious: Yes (Other)
  Sender: FDA-Public Use
  Company Number: GB-009507513-1804GBR010567

PATIENT
  Age: 32 Year
  Sex: Female
  Weight: 71.66 kg

DRUGS (2)
  1. NEXPLANON [Suspect]
     Active Substance: ETONOGESTREL
     Indication: CONTRACEPTION
     Dosage: 68 MG, UNK
     Route: 051
     Dates: start: 20170601
  2. TOPIRAMATE. [Concomitant]
     Active Substance: TOPIRAMATE

REACTIONS (4)
  - Fibrocystic breast disease [Not Recovered/Not Resolved]
  - Breast pain [Not Recovered/Not Resolved]
  - Lymphadenopathy [Unknown]
  - Breast tenderness [Unknown]

NARRATIVE: CASE EVENT DATE: 20180201
